FAERS Safety Report 6502608-6 (Version None)
Quarter: 2009Q4

REPORT INFORMATION
  Report Type: 
  Country: None (occurrence: None)
  Receive Date: 20091217
  Receipt Date: 20091207
  Transmission Date: 20100525
  Serious: Yes (Other)
  Sender: FDA-Public Use
  Company Number: US-JNJFOC-20091007627

PATIENT
  Sex: Male
  Weight: 88.45 kg

DRUGS (3)
  1. REMICADE [Suspect]
     Indication: PSORIATIC ARTHROPATHY
     Dosage: ON INFLIXIMAB FOR YEARS
     Route: 042
  2. MOBIC [Concomitant]
     Indication: ARTHRITIS
     Dosage: ON FOR SEVERAL YEARS
  3. ULTRACET [Concomitant]
     Indication: ARTHRALGIA
     Dosage: OFF AND ON FOR 3 YEARS

REACTIONS (1)
  - BASAL CELL CARCINOMA [None]
